FAERS Safety Report 20573372 (Version 2)
Quarter: 2022Q2

REPORT INFORMATION
  Report Type: Spontaneous
  Country: US (occurrence: US)
  Receive Date: 20220309
  Receipt Date: 20220427
  Transmission Date: 20220721
  Serious: No
  Sender: FDA-Public Use
  Company Number: US-GE HEALTHCARE-2022CSU000450

PATIENT
  Age: 25 Year
  Sex: Female
  Weight: 50.794 kg

DRUGS (3)
  1. CLARISCAN [Suspect]
     Active Substance: GADOTERATE MEGLUMINE
     Indication: Magnetic resonance imaging abdominal
     Dosage: 11 ML, SINGLE
     Route: 042
     Dates: start: 20220117, end: 20220117
  2. CLARISCAN [Suspect]
     Active Substance: GADOTERATE MEGLUMINE
     Indication: Uterine leiomyoma
  3. CLARISCAN [Suspect]
     Active Substance: GADOTERATE MEGLUMINE
     Indication: Adrenal mass

REACTIONS (1)
  - Urticaria [Recovered/Resolved]

NARRATIVE: CASE EVENT DATE: 20220117
